FAERS Safety Report 9362781 (Version 2)
Quarter: 2013Q3

REPORT INFORMATION
  Report Type: Report from Study
  Country: JP (occurrence: JP)
  Receive Date: 20130624
  Receipt Date: 20130705
  Transmission Date: 20140515
  Serious: Yes (Death)
  Sender: FDA-Public Use
  Company Number: JP-PFIZER INC-2013183065

PATIENT
  Age: 72 Year
  Sex: Male
  Weight: 62.4 kg

DRUGS (7)
  1. CRIZOTINIB [Suspect]
     Indication: NON-SMALL CELL LUNG CANCER
     Dosage: 250 MG, 2X/DAY
     Route: 048
     Dates: start: 20130321, end: 20130326
  2. TEPRENONE [Concomitant]
     Dosage: 50 MG, 3X/DAY
     Route: 048
  3. PANVITAN [Concomitant]
     Dosage: 1.0 G, 1X/DAY
     Route: 048
  4. INTRALIPOS [Concomitant]
     Dosage: 100 ML, 1X/DAY
  5. BFLUID [Concomitant]
     Dosage: 1000 ML, 1X/DAY
  6. PRIMPERAN [Concomitant]
     Dosage: 10 MG, 2X/DAY
  7. GASTER [Concomitant]
     Dosage: 20 MG, 1X/DAY

REACTIONS (2)
  - Disease progression [Fatal]
  - Non-small cell lung cancer [Fatal]
